FAERS Safety Report 14304673 (Version 1)
Quarter: 2017Q4

REPORT INFORMATION
  Report Type: Spontaneous
  Country: JP (occurrence: JP)
  Receive Date: 20171219
  Receipt Date: 20171219
  Transmission Date: 20180321
  Serious: Yes (Hospitalization, Other)
  Sender: FDA-Public Use
  Company Number: JP-OTSUKA-JP-2012-16678

PATIENT
  Age: 45 Year
  Sex: Female
  Weight: 106 kg

DRUGS (17)
  1. ABILIFY [Suspect]
     Active Substance: ARIPIPRAZOLE
     Indication: BIPOLAR DISORDER
     Dosage: 18 MG, QD
     Route: 048
     Dates: start: 20120914, end: 20121022
  2. LIMAS [Concomitant]
     Active Substance: LITHIUM CARBONATE
     Indication: BIPOLAR DISORDER
     Dosage: 200 MG, TID
     Route: 048
     Dates: start: 20101013, end: 20121023
  3. HIBERNA [Concomitant]
     Active Substance: PROMETHAZINE HYDROCHLORIDE
     Indication: PROPHYLAXIS
     Dosage: 25 MG, TID
     Route: 048
     Dates: start: 20101201, end: 20121109
  4. LAMOTRIGINE. [Concomitant]
     Active Substance: LAMOTRIGINE
     Indication: PRODUCT USED FOR UNKNOWN INDICATION
     Dosage: ALSO ON 26SEP-27SEP12: 75MG
     Route: 048
     Dates: start: 20120914, end: 20120927
  5. VALERIN [Concomitant]
     Active Substance: VALPROATE SODIUM
     Dosage: 400 MG, TID
     Route: 048
     Dates: start: 20120218, end: 20120913
  6. VALERIN [Concomitant]
     Active Substance: VALPROATE SODIUM
     Dosage: 200 MG, TID
     Route: 048
     Dates: start: 20121120
  7. LANDSEN [Concomitant]
     Active Substance: CLONAZEPAM
     Indication: BIPOLAR DISORDER
     Dosage: 1 MG, TID
     Route: 048
     Dates: start: 20110104, end: 20121109
  8. CLONAZEPAM. [Concomitant]
     Active Substance: CLONAZEPAM
     Indication: PRODUCT USED FOR UNKNOWN INDICATION
     Dosage: TABLET  LAST DOSE ON 09NOV2012
     Route: 065
     Dates: start: 20110104
  9. LAMICTAL [Concomitant]
     Active Substance: LAMOTRIGINE
     Dosage: 25 MG, TID
     Route: 048
     Dates: start: 20120926, end: 20120927
  10. LANDSEN [Concomitant]
     Active Substance: CLONAZEPAM
     Dosage: 2 MG, QD
     Route: 048
     Dates: start: 20121120
  11. LOSIZOPILON [Concomitant]
     Active Substance: ZOTEPINE
     Indication: BIPOLAR DISORDER
     Dosage: 25 MG, TID
     Route: 048
     Dates: start: 20120914, end: 20121021
  12. LOSIZOPILON [Concomitant]
     Active Substance: ZOTEPINE
     Dosage: 25 MG, QID
     Route: 048
     Dates: start: 20121124
  13. LAMICTAL [Concomitant]
     Active Substance: LAMOTRIGINE
     Indication: PRODUCT USED FOR UNKNOWN INDICATION
     Dosage: 25 MG, QD
     Route: 048
     Dates: start: 20120914
  14. ABILIFY [Suspect]
     Active Substance: ARIPIPRAZOLE
     Indication: BIPOLAR I DISORDER
  15. HIBERNA [Concomitant]
     Active Substance: PROMETHAZINE HYDROCHLORIDE
     Dosage: 25 MG, QID
     Route: 048
     Dates: start: 20121124
  16. VALERIN [Concomitant]
     Active Substance: VALPROATE SODIUM
     Indication: BIPOLAR DISORDER
     Dosage: 200 MG, TID
     Route: 048
     Dates: start: 20110112, end: 20120217
  17. VALERIN [Concomitant]
     Active Substance: VALPROATE SODIUM
     Dosage: 200 MG, TID
     Route: 048
     Dates: start: 20120914, end: 20121109

REACTIONS (12)
  - Pyrexia [Recovered/Resolved]
  - White blood cell count increased [Unknown]
  - Blood uric acid increased [Unknown]
  - Eczema [Recovered/Resolved]
  - Blood urea increased [Recovered/Resolved]
  - Rhabdomyolysis [Recovered/Resolved]
  - Hyperhidrosis [Recovered/Resolved]
  - Liver function test increased [Unknown]
  - Blood creatine phosphokinase increased [Recovered/Resolved]
  - C-reactive protein increased [Recovered/Resolved]
  - Blood creatinine increased [Recovered/Resolved]
  - Atrioventricular block first degree [Recovered/Resolved]

NARRATIVE: CASE EVENT DATE: 20120927
